FAERS Safety Report 7117967-3 (Version None)
Quarter: 2010Q4

REPORT INFORMATION
  Report Type: 
  Country: None (occurrence: None)
  Receive Date: 20101123
  Receipt Date: 20101118
  Transmission Date: 20110411
  Serious: Yes (Death)
  Sender: FDA-Public Use
  Company Number: PHHY2008AR37242

PATIENT
  Sex: Female

DRUGS (3)
  1. CLOZAPINE [Suspect]
     Indication: MENTAL DISORDER
     Dosage: UNK
     Dates: start: 20070914
  2. LEVOMEPROMAZINE [Concomitant]
  3. CHLORPROMAZINE [Concomitant]

REACTIONS (1)
  - DEATH [None]
